FAERS Safety Report 7857426-3 (Version None)
Quarter: 2011Q4

REPORT INFORMATION
  Report Type: 
  Country: None (occurrence: None)
  Receive Date: 20111027
  Receipt Date: 20100126
  Transmission Date: 20120403
  Serious: No
  Sender: FDA-Public Use
  Company Number: 2010BI002102

PATIENT
  Sex: Female

DRUGS (4)
  1. AVONEX [Concomitant]
     Indication: MULTIPLE SCLEROSIS
     Route: 030
  2. TYSABRI [Suspect]
     Indication: MULTIPLE SCLEROSIS
     Route: 042
     Dates: start: 20090305
  3. LORATADINE [Concomitant]
     Indication: PREMEDICATION
  4. AVONEX [Concomitant]
     Route: 030

REACTIONS (2)
  - URTICARIA [None]
  - PRURITUS [None]
